FAERS Safety Report 20581439 (Version 3)
Quarter: 2022Q1

REPORT INFORMATION
  Report Type: Spontaneous
  Country: US (occurrence: US)
  Receive Date: 20220311
  Receipt Date: 20220316
  Transmission Date: 20220423
  Serious: Yes (Hospitalization, Other)
  Sender: FDA-Public Use
  Company Number: US-MLMSERVICE-20220224-3397537-1

PATIENT
  Age: 36 Year
  Sex: Male

DRUGS (5)
  1. QUETIAPINE FUMARATE [Interacting]
     Active Substance: QUETIAPINE FUMARATE
     Indication: Product used for unknown indication
     Dosage: 300 MILLIGRAM, QD AT NIGHT
     Route: 065
  2. VENLAFAXINE [Interacting]
     Active Substance: VENLAFAXINE HYDROCHLORIDE
     Indication: Product used for unknown indication
     Dosage: 150 MILLIGRAM, QD
     Route: 065
  3. HERBALS\MITRAGYNINE [Interacting]
     Active Substance: HERBALS\MITRAGYNINE
     Indication: Product used for unknown indication
     Dosage: 90 GRAM, QD-CAPSULE
     Route: 065
  4. HERBALS\MITRAGYNINE [Interacting]
     Active Substance: HERBALS\MITRAGYNINE
     Dosage: 0.75 GRAM
     Route: 065
  5. HERBALS\MITRAGYNINE [Interacting]
     Active Substance: HERBALS\MITRAGYNINE
     Dosage: 15 DOSAGE FORM, QD-11 G (CAPSULE)
     Route: 065

REACTIONS (6)
  - Serotonin syndrome [Recovered/Resolved]
  - Electrocardiogram abnormal [Recovered/Resolved]
  - Drug level above therapeutic [Unknown]
  - Drug interaction [Unknown]
  - Herbal interaction [Unknown]
  - Electrocardiogram QT prolonged [Recovered/Resolved]
